FAERS Safety Report 10573231 (Version 2)
Quarter: 2016Q2

REPORT INFORMATION
  Report Type: Spontaneous
  Country: US (occurrence: US)
  Receive Date: 20141110
  Receipt Date: 20160415
  Transmission Date: 20160815
  Serious: Yes (Hospitalization)
  Sender: FDA-Public Use
  Company Number: US-BAYER-2014-163659

PATIENT
  Age: 35 Year
  Sex: Female

DRUGS (1)
  1. MIRENA [Suspect]
     Active Substance: LEVONORGESTREL
     Indication: CONTRACEPTION
     Dosage: 20 MCG/24HR, CONT
     Route: 015
     Dates: start: 20070724, end: 20071206

REACTIONS (3)
  - Pain [None]
  - Uterine perforation [None]
  - Injury [None]

NARRATIVE: CASE EVENT DATE: 200712
